FAERS Safety Report 5234055-1 (Version None)
Quarter: 2007Q1

REPORT INFORMATION
  Report Type: 
  Country: None (occurrence: None)
  Receive Date: 20070208
  Receipt Date: 20070130
  Transmission Date: 20070707
  Serious: Yes (Other)
  Sender: FDA-Public Use
  Company Number: FR-PFIZER INC-2006155300

PATIENT
  Sex: Male
  Weight: 75 kg

DRUGS (6)
  1. TAHOR [Suspect]
  2. GLUCOPHAGE [Concomitant]
     Indication: DIABETES MELLITUS
     Dosage: TEXT:850
  3. PRINZIDE [Concomitant]
     Indication: HYPERTENSION
     Dosage: TEXT:ONE-FREQ:DAILY
     Dates: start: 20020101
  4. HYDROCHLOROTHIAZIDE [Concomitant]
  5. PLAVIX [Concomitant]
     Indication: ARTHRITIS
     Dosage: TEXT:ONE-FREQ:DAILY
  6. NOVONORM [Concomitant]
     Indication: DIABETES MELLITUS
     Dosage: TEXT:1.5-FREQ:DAILY

REACTIONS (4)
  - CALCINOSIS [None]
  - CHOLESTASIS [None]
  - GAMMA-GLUTAMYLTRANSFERASE INCREASED [None]
  - HYPERCALCAEMIA [None]
